FAERS Safety Report 6903988-X (Version None)
Quarter: 2010Q3

REPORT INFORMATION
  Report Type: 
  Country: None (occurrence: None)
  Receive Date: 20100804
  Receipt Date: 20100722
  Transmission Date: 20110219
  Serious: Yes (Life-Threatening, Hospitalization)
  Sender: FDA-Public Use
  Company Number: US-RANBAXY-2010US-36250

PATIENT

DRUGS (3)
  1. VERAPAMIL [Suspect]
     Dosage: UNK, UNK
     Route: 065
  2. NIFEDIPINE [Suspect]
     Indication: SUPRAVENTRICULAR TACHYCARDIA
     Route: 065
  3. DILTIAZEM [Suspect]
     Indication: SUPRAVENTRICULAR TACHYCARDIA
     Route: 065

REACTIONS (12)
  - BLOOD CREATINE PHOSPHOKINASE INCREASED [None]
  - BRADYCARDIA [None]
  - BUNDLE BRANCH BLOCK LEFT [None]
  - CONFUSIONAL STATE [None]
  - CORONARY ARTERY DISEASE [None]
  - HYPERDYNAMIC LEFT VENTRICLE [None]
  - HYPOPERFUSION [None]
  - HYPOTENSION [None]
  - HYPOXIA [None]
  - INTENTIONAL OVERDOSE [None]
  - METABOLIC ACIDOSIS [None]
  - PULMONARY OEDEMA [None]
